FAERS Safety Report 6476090-1 (Version None)
Quarter: 2009Q4

REPORT INFORMATION
  Report Type: 
  Country: None (occurrence: None)
  Receive Date: 20091204
  Receipt Date: 20091120
  Transmission Date: 20100525
  Serious: Yes (Other)
  Sender: FDA-Public Use
  Company Number: JP-GENENTECH-295077

PATIENT
  Sex: Male

DRUGS (4)
  1. AVASTIN [Suspect]
     Indication: LARGE INTESTINE CARCINOMA
     Dosage: 5 MG/KG, Q2W
  2. ELPLAT [Suspect]
     Indication: LARGE INTESTINE CARCINOMA
     Route: 041
  3. FLUOROURACIL [Concomitant]
     Indication: LARGE INTESTINE CARCINOMA
  4. CALCIUM LEVOFOLINATE [Concomitant]
     Indication: LARGE INTESTINE CARCINOMA

REACTIONS (1)
  - DISSEMINATED INTRAVASCULAR COAGULATION [None]
